FAERS Safety Report 13247260 (Version 1)
Quarter: 2017Q1

REPORT INFORMATION
  Report Type: Spontaneous
  Country: US (occurrence: US)
  Receive Date: 20170217
  Receipt Date: 20170217
  Transmission Date: 20170428
  Serious: No
  Sender: FDA-Public Use
  Company Number: US-PERRIGO-16US022005

PATIENT
  Age: 71 Year
  Sex: Male
  Weight: 87.53 kg

DRUGS (4)
  1. CETIRIZINE HYDROCHLORIDE. [Suspect]
     Active Substance: CETIRIZINE HYDROCHLORIDE
     Indication: NASAL CONGESTION
     Dosage: 10 MG, SINGLE
     Route: 048
     Dates: start: 20161111, end: 20161111
  2. FLOMAX [Concomitant]
     Active Substance: TAMSULOSIN HYDROCHLORIDE
     Indication: DYSURIA
     Dosage: 0.4 MG, UNKNOWN
     Route: 048
     Dates: start: 2013
  3. BABY ASPIRIN [Concomitant]
     Active Substance: ASPIRIN
     Indication: BLOOD CHOLESTEROL INCREASED
     Dosage: 81MG, UNKNOWN
     Route: 048
     Dates: start: 2008
  4. VYTORIN [Concomitant]
     Active Substance: EZETIMIBE\SIMVASTATIN
     Indication: BLOOD CHOLESTEROL INCREASED
     Dosage: UNK
     Route: 048
     Dates: start: 2008

REACTIONS (4)
  - Drug administered to patient of inappropriate age [Recovered/Resolved]
  - Off label use [Recovered/Resolved]
  - Dizziness [Recovered/Resolved]
  - Nausea [Recovered/Resolved]

NARRATIVE: CASE EVENT DATE: 20161111
